FAERS Safety Report 8361778-8 (Version None)
Quarter: 2012Q2

REPORT INFORMATION
  Report Type: 
  Country: None (occurrence: None)
  Receive Date: 20120515
  Receipt Date: 20120510
  Transmission Date: 20120825
  Serious: Yes (Other)
  Sender: FDA-Public Use
  Company Number: US-GLAXOSMITHKLINE-A0946613A

PATIENT
  Age: 48 Year
  Sex: Female

DRUGS (5)
  1. LOVASTATIN [Concomitant]
  2. LISINOPRIL [Concomitant]
  3. AVANDIA [Suspect]
     Indication: TYPE 2 DIABETES MELLITUS
     Dosage: 4MG PER DAY
     Route: 048
     Dates: start: 20080429, end: 20110505
  4. JANUVIA [Concomitant]
  5. ANTIDIABETIC [Concomitant]

REACTIONS (3)
  - VISUAL IMPAIRMENT [None]
  - MYOCARDIAL INFARCTION [None]
  - DIABETES MELLITUS INADEQUATE CONTROL [None]
